FAERS Safety Report 5404769-9 (Version None)
Quarter: 2007Q3

REPORT INFORMATION
  Report Type: 
  Country: None (occurrence: None)
  Receive Date: 20070731
  Receipt Date: 20070719
  Transmission Date: 20080115
  Serious: Yes (Hospitalization)
  Sender: FDA-Public Use
  Company Number: WAES 0707USA03089

PATIENT
  Age: 54 Year
  Sex: Male

DRUGS (4)
  1. PRINZIDE [Suspect]
     Indication: HYPERTENSION
     Dosage: PO
     Route: 048
  2. PEG-INTRON [Suspect]
     Indication: HEPATITIS C
     Dates: start: 20070613, end: 20070628
  3. REBETOL [Suspect]
     Indication: HEPATITIS C
     Dosage: PO
     Route: 048
     Dates: start: 20070613, end: 20070628
  4. THERAPY UNSPECIFIED UNK [Suspect]
     Indication: BLOOD PRESSURE

REACTIONS (7)
  - BACK PAIN [None]
  - DEHYDRATION [None]
  - DIZZINESS [None]
  - DRUG INTERACTION [None]
  - GAIT DISTURBANCE [None]
  - PRESYNCOPE [None]
  - PYREXIA [None]
